FAERS Safety Report 20874988 (Version 1)
Quarter: 2022Q2

REPORT INFORMATION
  Report Type: Spontaneous
  Country: CA (occurrence: CA)
  Receive Date: 20220526
  Receipt Date: 20220526
  Transmission Date: 20220721
  Serious: Yes (Life-Threatening, Other)
  Sender: FDA-Public Use
  Company Number: None

PATIENT
  Age: 9 Year
  Sex: Male
  Weight: 32 kg

DRUGS (33)
  1. BUSULFAN [Suspect]
     Active Substance: BUSULFAN
     Indication: Transplant
     Route: 042
  2. METHOTREXATE [Suspect]
     Active Substance: METHOTREXATE
     Indication: Transplant
  3. CYCLOPHOSPHAMIDE [Suspect]
     Active Substance: CYCLOPHOSPHAMIDE
     Indication: Transplant
     Route: 042
  4. SULFAMETHOXAZOLE\TRIMETHOPRIM [Concomitant]
     Active Substance: SULFAMETHOXAZOLE\TRIMETHOPRIM
  5. URSODIOL [Concomitant]
     Active Substance: URSODIOL
  6. VANCOMYCIN [Concomitant]
     Active Substance: VANCOMYCIN
  7. ACYCLOVIR [Concomitant]
     Active Substance: ACYCLOVIR
  8. AMLODIPINE [Concomitant]
     Active Substance: AMLODIPINE BESYLATE
  9. CALCIUM [Concomitant]
     Active Substance: CALCIUM
  10. CHOLECALCIFEROL [Concomitant]
     Active Substance: CHOLECALCIFEROL
  11. CYCLOSPORINE [Concomitant]
     Active Substance: CYCLOSPORINE
  12. DEXAMETHASONE [Concomitant]
     Active Substance: DEXAMETHASONE
     Dosage: LIQUID INTRA-ARTICULAR
  13. DIMENHYDRINATE [Concomitant]
     Active Substance: DIMENHYDRINATE
     Dosage: LIQUID INTRAVENOUS
  14. DIPHENHYDRAMINE [Concomitant]
     Active Substance: DIPHENHYDRAMINE
  15. FAMCICLOVIR [Concomitant]
     Active Substance: FAMCICLOVIR
  16. FLUCONAZOLE [Concomitant]
     Active Substance: FLUCONAZOLE
  17. HYDROMORPHONE [Concomitant]
     Active Substance: HYDROMORPHONE
  18. LANSOPRAZOLE [Concomitant]
     Active Substance: LANSOPRAZOLE
  19. LEVETIRACETAM [Concomitant]
     Active Substance: LEVETIRACETAM
  20. LEVOTHYROXINE [Concomitant]
     Active Substance: LEVOTHYROXINE
  21. LORAZEPAM [Concomitant]
     Active Substance: LORAZEPAM
  22. MAGNESIUM [Concomitant]
     Active Substance: MAGNESIUM
  23. MESNA [Concomitant]
     Active Substance: MESNA
  24. METHYLPREDNISOLONE [Concomitant]
     Active Substance: METHYLPREDNISOLONE
  25. METOCLOPRAMIDE [Concomitant]
     Active Substance: METOCLOPRAMIDE
  26. MYCAMINE [Concomitant]
     Active Substance: MICAFUNGIN SODIUM
     Dosage: POWDER FOR SOLUTION INTRAVENOUS
  27. OLANZAPINE [Concomitant]
     Active Substance: OLANZAPINE
  28. ONDANSETRON [Concomitant]
     Active Substance: ONDANSETRON
  29. PIPERACILLIN AND TAZOBACTAM [Concomitant]
     Active Substance: PIPERACILLIN SODIUM\TAZOBACTAM SODIUM
  30. POLYETHYLENE GLYCOL [Concomitant]
     Active Substance: POLYETHYLENE GLYCOL
  31. POTASSIUM [Concomitant]
     Active Substance: POTASSIUM
     Dosage: SOLUTION INTRAVENOUS
  32. THYMOCYTE IMMUNE GLOBULIN NOS [Concomitant]
     Active Substance: THYMOCYTE IMMUNE GLOBULIN NOS
     Dosage: POWDER FOR SOLUTION INTRAVENOUS
  33. RANITIDINE [Concomitant]
     Active Substance: RANITIDINE

REACTIONS (2)
  - Aplastic anaemia [Recovered/Resolved]
  - Off label use [Unknown]
